FAERS Safety Report 18372456 (Version 1)
Quarter: 2020Q4

REPORT INFORMATION
  Report Type: Spontaneous
  Country: US (occurrence: US)
  Receive Date: 20201012
  Receipt Date: 20201012
  Transmission Date: 20210114
  Serious: No
  Sender: FDA-Public Use
  Company Number: US-PFIZER INC-2020389804

PATIENT
  Age: 62 Year
  Sex: Female
  Weight: 108.86 kg

DRUGS (1)
  1. PREMPRO [Suspect]
     Active Substance: ESTROGENS, CONJUGATED\MEDROXYPROGESTERONE ACETATE
     Indication: HOT FLUSH
     Dosage: UNK, DAILY (0.45-1.5MG)
     Route: 048
     Dates: start: 20201001

REACTIONS (1)
  - Metrorrhagia [Unknown]

NARRATIVE: CASE EVENT DATE: 20201007
